FAERS Safety Report 12652504 (Version 1)
Quarter: 2016Q3

REPORT INFORMATION
  Report Type: Spontaneous
  Country: US (occurrence: US)
  Receive Date: 20160815
  Receipt Date: 20160815
  Transmission Date: 20161109
  Serious: No
  Sender: FDA-Public Use
  Company Number: US-PFIZER INC-2016370150

PATIENT
  Age: 63 Year
  Sex: Female

DRUGS (26)
  1. OMEPRAZOLE. [Concomitant]
     Active Substance: OMEPRAZOLE
     Dosage: 20 MG, 2X/DAY
     Route: 048
     Dates: start: 20160617
  2. PREDNISONE. [Concomitant]
     Active Substance: PREDNISONE
     Dosage: 30 MG, DAILY (20 MG TABLET, TAKE 1.5 TABLETS BY MOUTH DAILY)
     Route: 048
     Dates: start: 20160622
  3. LYRICA [Suspect]
     Active Substance: PREGABALIN
     Indication: FIBROMYALGIA
     Dosage: 150 MG, 2X/DAY
     Route: 048
     Dates: start: 20160515
  4. PULMICORT TURBUHALER [Concomitant]
     Active Substance: BUDESONIDE
     Dosage: 0.5 MG, DAILY (0.5 MG/2 ML)
  5. CALCIUM [Concomitant]
     Active Substance: CALCIUM
     Dosage: 1500 MG, DAILY
     Route: 048
  6. CULTURELLE [Concomitant]
     Active Substance: LACTOBACILLUS RHAMNOSUS
     Dosage: 1 DF, DAILY
     Route: 048
  7. MAG-OX [Concomitant]
     Active Substance: MAGNESIUM OXIDE
     Dosage: 400 MG, DAILY
     Route: 048
  8. EUCERIN [Concomitant]
     Active Substance: ENSULIZOLE\EUCERIN\OCTINOXATE\OCTISALATE\TITANIUM DIOXIDE\ZINC OXIDE
     Dosage: UNK
     Route: 061
     Dates: start: 20160515
  9. COZAAR [Concomitant]
     Active Substance: LOSARTAN POTASSIUM
     Dosage: 50 MG, 1X/DAY
     Route: 048
     Dates: start: 20160525
  10. OCEAN SALINE NASAL SPRAY [Concomitant]
     Active Substance: SODIUM CHLORIDE
     Indication: NASAL DRYNESS
     Dosage: UNK, AS NEEDED (0.65% NASAL SPRAY; 2 SPRAYS BY EACH NARE ROUTE EVERY HOUR AS NEEDED)
     Route: 045
  11. LYRICA [Suspect]
     Active Substance: PREGABALIN
     Dosage: 150 MG, 2X/DAY
     Route: 048
     Dates: start: 20160721
  12. ALBUTEROL. [Concomitant]
     Active Substance: ALBUTEROL
     Indication: WHEEZING
     Dosage: 2.5 MG, AS NEEDED (TAKE 2.5 MG BY NEBULIZATION EVERY 6 HOURS/ TAKE 2.5 MG BY NEBULIZATION EVERY 6H)
  13. IMODIUM [Concomitant]
     Active Substance: LOPERAMIDE HYDROCHLORIDE
     Indication: DIARRHOEA
     Dosage: 2 MG, AS NEEDED (EVERY 4 HOURS AS NEEDED)
     Route: 048
     Dates: start: 20160515
  14. ZANAFLEX [Concomitant]
     Active Substance: TIZANIDINE HYDROCHLORIDE
     Indication: MUSCLE SPASMS
     Dosage: 2 MG, AS NEEDED
     Route: 048
     Dates: start: 20160525
  15. ULTRAM [Concomitant]
     Active Substance: TRAMADOL HYDROCHLORIDE
     Dosage: 50 MG, 4X/DAY
     Route: 048
     Dates: start: 20160525
  16. ALBUTEROL. [Concomitant]
     Active Substance: ALBUTEROL
     Dosage: UNK, AS NEEDED (90 MCG/PUFF INHALER INHALE 2 PUFFS INTO THE LUNG EVERY 4 HOURS)
  17. MIRAPEX [Concomitant]
     Active Substance: PRAMIPEXOLE DIHYDROCHLORIDE
     Dosage: 0.25 MG, 1X/DAY (EVERY EVENING)
     Route: 048
  18. VALTREX [Concomitant]
     Active Substance: VALACYCLOVIR HYDROCHLORIDE
     Dosage: 1000 MG, AS NEEDED
     Route: 048
  19. VITAMIN B12 [Concomitant]
     Active Substance: CYANOCOBALAMIN
     Dosage: 1000 UG, DAILY
     Route: 048
  20. VOLTAREN [Concomitant]
     Active Substance: DICLOFENAC SODIUM
     Dosage: 4 G, 4X/DAY (1% GEL)
     Route: 061
     Dates: start: 20160525
  21. LOPRESSOR [Concomitant]
     Active Substance: METOPROLOL TARTRATE
     Dosage: 75 MG, 2X/DAY (25 MG TABLET, TAKE 3 TABLETS BY MOUTH 2 TIMES)
     Route: 048
     Dates: start: 20160622
  22. BACTROBAN [Concomitant]
     Active Substance: MUPIROCIN\MUPIROCIN CALCIUM
     Dosage: UNK, 3X/DAY (2% OINTMENT)
     Route: 061
  23. TYLENOL [Concomitant]
     Active Substance: ACETAMINOPHEN
     Indication: PAIN
     Dosage: 325 MG, AS NEEDED (EVERY 6 HOURS AS NEEDED )
     Route: 048
  24. CHLORTHALIDONE. [Concomitant]
     Active Substance: CHLORTHALIDONE
     Dosage: 25 MG, DAILY
     Route: 048
     Dates: start: 20151119
  25. REMERON [Concomitant]
     Active Substance: MIRTAZAPINE
     Dosage: 30 MG, 1X/DAY (NIGHTLY)
     Route: 048
  26. EFFEXOR [Concomitant]
     Active Substance: VENLAFAXINE HYDROCHLORIDE
     Dosage: 300 MG, 1X/DAY (TAKE 2 CAPSULES BY MOUTH EVERY MORNING)
     Dates: start: 20160609

REACTIONS (1)
  - Neuropathy peripheral [Unknown]
